FAERS Safety Report 8889661 (Version 2)
Quarter: 2012Q4

REPORT INFORMATION
  Report Type: 
  Country: US (occurrence: US)
  Receive Date: 20121107
  Receipt Date: 20121204
  Transmission Date: 20130627
  Serious: Yes (Hospitalization, Other)
  Sender: FDA-Public Use
  Company Number: US-JNJFOC-20121015474

PATIENT
  Sex: Male
  Weight: 71.67 kg

DRUGS (3)
  1. FENTANYL TRANSDERMAL SYSTEM [Suspect]
     Indication: PAIN
     Route: 062
     Dates: start: 2008, end: 2011
  2. DUROGESIC [Suspect]
     Indication: PAIN
     Dosage: 100 + 25 ug/hr every 3 days
     Route: 062
     Dates: start: 2011
  3. LYRICA [Concomitant]
     Route: 065

REACTIONS (12)
  - Gastric perforation [Unknown]
  - Neoplasm malignant [Recovered/Resolved]
  - Pneumonia [Recovered/Resolved]
  - Intervertebral disc compression [Recovered/Resolved]
  - Abnormal loss of weight [Not Recovered/Not Resolved]
  - Arthritis [Not Recovered/Not Resolved]
  - Feeling abnormal [Not Recovered/Not Resolved]
  - Tongue neoplasm malignant stage unspecified [Recovered/Resolved]
  - Adverse event [Not Recovered/Not Resolved]
  - Glossodynia [Unknown]
  - Inappropriate schedule of drug administration [Unknown]
  - Tooth injury [Unknown]
